FAERS Safety Report 4379621-0 (Version None)
Quarter: 2004Q2

REPORT INFORMATION
  Report Type: 
  Country: None (occurrence: None)
  Receive Date: 20040614
  Receipt Date: 20040603
  Transmission Date: 20050107
  Serious: Yes (Death)
  Sender: FDA-Public Use
  Company Number: 2004AC00137

PATIENT
  Age: 50 Year
  Sex: Male

DRUGS (3)
  1. IRESSA [Suspect]
     Indication: LUNG NEOPLASM MALIGNANT
  2. METHADONE HCL [Suspect]
     Indication: DEPENDENCE
  3. METHADONE HCL [Concomitant]

REACTIONS (6)
  - CONFUSIONAL STATE [None]
  - DRUG INTERACTION [None]
  - HYPOTENSION [None]
  - OVERDOSE [None]
  - RESPIRATORY FAILURE [None]
  - TACHYPNOEA [None]
